FAERS Safety Report 9506562 (Version 4)
Quarter: 2013Q4

REPORT INFORMATION
  Report Type: Spontaneous
  Country: US (occurrence: US)
  Receive Date: 20130906
  Receipt Date: 20131122
  Transmission Date: 20140711
  Serious: Yes (Hospitalization, Other)
  Sender: FDA-Public Use
  Company Number: US-EXELIXIS-CABO-13003149

PATIENT
  Age: 65 Year
  Sex: Male
  Weight: 88.9 kg

DRUGS (16)
  1. COMETRIQ [Suspect]
     Indication: THYROID CANCER
     Dosage: 140 MG, QD
     Route: 048
     Dates: start: 20130805, end: 20130813
  2. COMETRIQ [Suspect]
     Dosage: 80 MG, QOD
     Route: 048
     Dates: start: 20130909, end: 2013
  3. COMETRIQ [Suspect]
     Dosage: 60 MG, QOD
     Route: 048
     Dates: start: 20130909, end: 2013
  4. ALBUTEROL [Concomitant]
  5. ROCALTROL [Concomitant]
     Dosage: .25 ?G, BID
     Route: 048
  6. CALCITRATE [Concomitant]
     Dosage: 950 MG, 4 TABLETS AT 4X^S DAILY
     Route: 048
  7. DECADRON [Concomitant]
     Dosage: 4 MG/ML, AS DIRECTED BY PRESCRIBER
  8. FLORINEF [Concomitant]
     Dosage: .1 MG, QD
     Route: 048
  9. CORTEF [Concomitant]
     Dosage: 10 MG, AS DIRECTED BY PRESCRIBER
     Route: 048
  10. CORTEF [Concomitant]
     Dosage: 20 MG, AS DIRECTED BY PRESCRIBER
     Route: 048
  11. CORTEF [Concomitant]
     Dosage: 5 MG, AS DIRECTED BY PRESCRIBER
     Route: 048
  12. LEVOTHYROXINE [Concomitant]
     Dosage: 175 ?G, QD IN THE MORNING
     Route: 048
  13. MAGNESIUM [Concomitant]
     Dosage: 250 MG, QD
     Route: 048
  14. PROTONIX [Concomitant]
     Dosage: 40 MG, TAKEN IN THE MORNING
     Route: 048
  15. K-DUR [Concomitant]
     Dosage: 20 MEQ, TID
     Route: 048
  16. SENOKOT-S [Concomitant]
     Dosage: 8.6-50 MG
     Route: 048

REACTIONS (11)
  - Supraventricular tachycardia [Unknown]
  - Chest pain [Unknown]
  - Pleural effusion [Unknown]
  - Malignant neoplasm progression [Unknown]
  - Back pain [Unknown]
  - Dyspnoea [Recovering/Resolving]
  - Respiratory tract congestion [Unknown]
  - Dizziness [Recovered/Resolved]
  - Blood pressure increased [Unknown]
  - Fatigue [Unknown]
  - Abdominal pain upper [Unknown]
